FAERS Safety Report 9069745 (Version 3)
Quarter: 2013Q1

REPORT INFORMATION
  Report Type: Spontaneous
  Country: ES (occurrence: ES)
  Receive Date: 20130215
  Receipt Date: 20130318
  Transmission Date: 20140127
  Serious: Yes (Death, Hospitalization)
  Sender: FDA-Public Use
  Company Number: ES-B.I. PHARMACEUTICALS,INC./RIDGEFIELD-2013-ES-00032ES

PATIENT
  Age: 85 Year
  Sex: Male

DRUGS (7)
  1. MIRAPEXIN [Suspect]
     Indication: PARKINSON^S DISEASE
     Dosage: 2.1 MG
     Route: 048
     Dates: start: 20121109, end: 20121114
  2. MIRAPEXIN [Suspect]
     Dosage: 1.05 MG
     Route: 048
     Dates: start: 20121114
  3. MIRAPEXIN [Suspect]
     Dosage: 2.1 MG
     Route: 048
  4. LORAZEPAM [Suspect]
     Indication: DEPRESSION
     Dosage: 1 MG
     Route: 048
     Dates: start: 20121029, end: 20121227
  5. SINEMET [Suspect]
     Indication: PARKINSON^S DISEASE
     Route: 048
     Dates: end: 20121114
  6. SINEMET [Suspect]
     Dosage: STRENGTH: 25/250 MG; DAILY DOSE: 3 DF
     Route: 048
     Dates: start: 20121114, end: 20121227
  7. AVIDART [Concomitant]
     Indication: BENIGN PROSTATIC HYPERPLASIA
     Dosage: 0.5 MG
     Route: 048
     Dates: start: 2008, end: 20121227

REACTIONS (3)
  - Cardio-respiratory arrest [Fatal]
  - Depressed level of consciousness [Fatal]
  - Drug interaction [Fatal]
